FAERS Safety Report 5848104-0 (Version None)
Quarter: 2008Q3

REPORT INFORMATION
  Report Type: 
  Country: None (occurrence: None)
  Receive Date: 20080814
  Receipt Date: 20080801
  Transmission Date: 20090109
  Serious: Yes (Life-Threatening, Hospitalization)
  Sender: FDA-Public Use
  Company Number: 2008-02388

PATIENT
  Age: 64 Year
  Sex: Female
  Weight: 43 kg

DRUGS (12)
  1. VELCADE [Suspect]
     Indication: MULTIPLE MYELOMA
     Dosage: 1.3 MG/M2, INTRAVENOUS
     Route: 042
     Dates: start: 20080626, end: 20080626
  2. VORICONAZOLE      (VORICONAZOLE) TABLET [Concomitant]
  3. OMEPRAZOLE [Concomitant]
  4. MUCOSTA         (REBAMIPIDE) [Concomitant]
  5. ALLOPOURINOL (ALLOOPURINOL) [Concomitant]
  6. ONE-ALPHA (ALFACALCIDOL) [Concomitant]
  7. SULFAMETHOXAZOLE AND TRIMETHOPRIM [Concomitant]
  8. DECADRON SRC [Concomitant]
  9. MOHRUS (KETOPROFEN) [Concomitant]
  10. LIDOCAINE [Concomitant]
  11. IMMUNE GLOBULIN INTRAVENOUS (HUMAN) [Concomitant]
  12. ISOTONIC SOLUTIONS [Concomitant]

REACTIONS (2)
  - INTERSTITIAL LUNG DISEASE [None]
  - PULMONARY OEDEMA [None]
